FAERS Safety Report 8150466-9 (Version None)
Quarter: 2012Q1

REPORT INFORMATION
  Report Type: 
  Country: None (occurrence: None)
  Receive Date: 20120220
  Receipt Date: 20120209
  Transmission Date: 20120608
  Serious: Yes (Hospitalization)
  Sender: FDA-Public Use
  Company Number: US-VIROPHARMA INCORPORATED-20120127CINRY2605

PATIENT
  Sex: Female

DRUGS (2)
  1. PROLIA [Suspect]
     Indication: OSTEOPOROSIS
     Dosage: UNKNOWN
  2. CINRYZE [Suspect]
     Indication: HEREDITARY ANGIOEDEMA
     Dates: start: 20100614

REACTIONS (6)
  - BLOOD CALCIUM DECREASED [None]
  - ANIMAL SCRATCH [None]
  - PAIN IN JAW [None]
  - HYPOAESTHESIA [None]
  - ANIMAL BITE [None]
  - ARTHRALGIA [None]
